FAERS Safety Report 16167030 (Version 1)
Quarter: 2019Q2

REPORT INFORMATION
  Report Type: Spontaneous
  Country: DE (occurrence: DE)
  Receive Date: 20190408
  Receipt Date: 20190408
  Transmission Date: 20190711
  Serious: Yes (Death, Hospitalization, Disabling, Other)
  Sender: FDA-Public Use
  Company Number: DE-ACCORD-118484

PATIENT
  Age: 76 Year
  Sex: Female
  Weight: 65 kg

DRUGS (12)
  1. KEVATRIL [Concomitant]
     Active Substance: GRANISETRON HYDROCHLORIDE
     Indication: VOMITING
     Dosage: DAILY DOSE: 3 MG MILLGRAM(S) EVERY CYCLICAL
     Route: 042
     Dates: start: 20130912, end: 20131028
  2. AVASTIN [Suspect]
     Active Substance: BEVACIZUMAB
     Indication: RECTAL CANCER METASTATIC
     Dosage: 5 MG/KG?4 CYCLES IN TOTAL, LAST DOSE PRIOR TO SAE: 28/OCT/2013
     Route: 042
     Dates: start: 20130912, end: 20131112
  3. OXALIPLATIN. [Suspect]
     Active Substance: OXALIPLATIN
     Indication: RECTAL CANCER METASTATIC
     Route: 065
     Dates: start: 20131028, end: 20131028
  4. CAPTOPRIL. [Concomitant]
     Active Substance: CAPTOPRIL
     Indication: HYPERTENSION
     Dosage: DAILY DOSE: 100 MG MILLGRAM(S) EVERY DAYS
     Route: 048
     Dates: start: 1993
  5. NIFEDIPINE. [Concomitant]
     Active Substance: NIFEDIPINE
     Indication: HYPERTENSION
     Dosage: DOSE: 5-10 MG, FORM: 10 MG, 20 MG
     Route: 048
     Dates: start: 1993
  6. IRINOTECAN [Suspect]
     Active Substance: IRINOTECAN
     Indication: RECTAL CANCER METASTATIC
     Dosage: DAILY DOSE: 221 MG EVERY 2 WEEKS
     Route: 042
     Dates: start: 20140107, end: 20140121
  7. FLUOROURACIL. [Suspect]
     Active Substance: FLUOROURACIL
     Indication: PRODUCT USED FOR UNKNOWN INDICATION
     Dosage: DAILY DOSE: 600 MG MILLGRAM(S) EVERY 2 WEEKS, 738 MG FROM 21-JAN-2014 TO 23-JAN-2014.
     Route: 040
     Dates: start: 20140108, end: 20140109
  8. URACID [Concomitant]
     Dosage: DAILY DOSE: 200 MG MILLGRAM(S) EVERY DAYS
     Route: 065
     Dates: start: 20140113
  9. DEXAMETHASONE. [Concomitant]
     Active Substance: DEXAMETHASONE
     Indication: VOMITING
     Dosage: DAILY DOSE: 12 MG MILLGRAM(S) EVERY CYCLICAL
     Route: 048
     Dates: start: 20130912, end: 20131028
  10. FOLINIC ACID [Suspect]
     Active Substance: LEUCOVORIN
     Indication: RECTAL CANCER METASTATIC
     Dosage: DAILY DOSE: 326 MG MILLGRAM(S) EVERY 2 WEEKS, 200 MG FROM 12-SEP-2013 TO 28-OCT-2013.
     Route: 042
     Dates: start: 20130913, end: 20131126
  11. CETUXIMAB. [Concomitant]
     Active Substance: CETUXIMAB
     Dosage: DAILY DOSE: 400 MG MILLGRAM(S) EVERY TOTAL
     Route: 065
     Dates: start: 20131210, end: 20131210
  12. EUTHYROX [Concomitant]
     Active Substance: LEVOTHYROXINE SODIUM
     Indication: HYPOTHYROIDISM
     Dosage: DAILY DOSE: 100 UG EVERY DAYS
     Route: 065
     Dates: start: 1980

REACTIONS (5)
  - Hydronephrosis [Recovered/Resolved]
  - Malignant neoplasm progression [Fatal]
  - Musculoskeletal pain [Recovered/Resolved]
  - Abdominal pain [Recovered/Resolved]
  - Deep vein thrombosis [Recovering/Resolving]

NARRATIVE: CASE EVENT DATE: 20131112
